FAERS Safety Report 7531072-3 (Version None)
Quarter: 2011Q2

REPORT INFORMATION
  Report Type: 
  Country: None (occurrence: None)
  Receive Date: 20110531
  Receipt Date: 20110516
  Transmission Date: 20111010
  Serious: Yes (Hospitalization, Disabling)
  Sender: FDA-Public Use
  Company Number: 2011MA005972

PATIENT
  Age: 73 Year
  Sex: Male

DRUGS (3)
  1. LISINOPRIL [Concomitant]
  2. HYDROCHLOROTHIAZIDE [Suspect]
     Indication: HYPERTENSION
     Dosage: 50 MG, OD,
  3. ALPHACALCIDOL [Concomitant]

REACTIONS (14)
  - ASTHENIA [None]
  - HYPOVOLAEMIA [None]
  - FATIGUE [None]
  - METABOLIC ALKALOSIS [None]
  - BLOOD CALCIUM DECREASED [None]
  - HYPOAESTHESIA [None]
  - HYPERCALCAEMIA [None]
  - NEPHROLITHIASIS [None]
  - BLOOD PRESSURE INCREASED [None]
  - MILK-ALKALI SYNDROME [None]
  - BLOOD CREATININE INCREASED [None]
  - AORTIC CALCIFICATION [None]
  - DECREASED APPETITE [None]
  - TONGUE DRY [None]
